FAERS Safety Report 10662108 (Version 4)
Quarter: 2016Q1

REPORT INFORMATION
  Report Type: Spontaneous
  Country: US (occurrence: US)
  Receive Date: 20141218
  Receipt Date: 20160106
  Transmission Date: 20160525
  Serious: Yes (Other)
  Sender: FDA-Public Use
  Company Number: US-PFIZER INC-2014345004

PATIENT
  Age: 55 Year
  Sex: Female

DRUGS (10)
  1. XELJANZ [Suspect]
     Active Substance: TOFACITINIB CITRATE
     Dosage: 5 MG, 2X/DAY
     Route: 048
     Dates: start: 20140914
  2. HYDROCODONE BITARTRATE AND ACETAMINOPHEN [Concomitant]
     Active Substance: ACETAMINOPHEN\HYDROCODONE BITARTRATE
     Dosage: HYDROCODONE-7.5+ACETAMINOPHEN 500
  3. ARMOUR THYROID [Concomitant]
     Active Substance: THYROID, PORCINE
     Dosage: 120 MG, UNK
  4. ASPIR-LOW EC [Concomitant]
     Dosage: 81 MG, UNK
  5. CENTRUM MULTIVITAMIN [Concomitant]
     Dosage: UNK
  6. PREDNISONE. [Concomitant]
     Active Substance: PREDNISONE
     Dosage: 5 MG, UNK
  7. VITAMIN D3 [Concomitant]
     Active Substance: CHOLECALCIFEROL
     Dosage: 5000 IU, UNK
  8. ALFALFA [Concomitant]
     Active Substance: ALFALFA
     Dosage: 250 MG, UNK
  9. OMEGA ESSENTIALS [Concomitant]
     Active Substance: DOCONEXENT\ ICOSAPENT\ FISH OIL\ OMEGA-3 FATTY ACIDS
     Dosage: UNK (1150-1000 LIQUID)
  10. XELJANZ [Suspect]
     Active Substance: TOFACITINIB CITRATE
     Indication: RHEUMATOID ARTHRITIS
     Dosage: 5 MG, 2X/DAY
     Route: 048
     Dates: start: 20140914

REACTIONS (6)
  - Rheumatoid arthritis [Unknown]
  - Depression [Not Recovered/Not Resolved]
  - Fatigue [Not Recovered/Not Resolved]
  - Urine output decreased [Not Recovered/Not Resolved]
  - Condition aggravated [Unknown]
  - Asthenia [Not Recovered/Not Resolved]

NARRATIVE: CASE EVENT DATE: 20141205
